FAERS Safety Report 6839195-9 (Version None)
Quarter: 2010Q2

REPORT INFORMATION
  Report Type: 
  Country: None (occurrence: None)
  Receive Date: 20100629
  Receipt Date: 20100513
  Transmission Date: 20101027
  Serious: Yes (Other)
  Sender: FDA-Public Use
  Company Number: US-WYE-H15178510

PATIENT
  Age: 58 Year
  Sex: Male
  Weight: 90.35 kg

DRUGS (5)
  1. TORISEL [Suspect]
     Indication: METASTATIC RENAL CELL CARCINOMA
     Dosage: 25 MG, 1X PER 1 WK,
     Dates: start: 20100428, end: 20100505
  2. MULTIVIT (VITAMINS NOS) [Concomitant]
  3. ACETAMINOPHEN [Concomitant]
  4. ZYRTEC [Concomitant]
  5. VALTREX [Concomitant]

REACTIONS (2)
  - RENAL FAILURE [None]
  - STOMATITIS [None]
